FAERS Safety Report 6272331-4 (Version None)
Quarter: 2009Q3

REPORT INFORMATION
  Report Type: 
  Country: None (occurrence: None)
  Receive Date: 20090717
  Receipt Date: 20090708
  Transmission Date: 20100115
  Serious: Yes (Death)
  Sender: FDA-Public Use
  Company Number: JP-ROCHE-643486

PATIENT
  Age: 52 Year
  Sex: Male

DRUGS (3)
  1. CELLCEPT [Suspect]
     Indication: CHRONIC GRAFT VERSUS HOST DISEASE
     Route: 048
     Dates: start: 20080101
  2. TACROLIMUS [Concomitant]
     Route: 048
     Dates: start: 20080101
  3. PREDNISOLONE [Concomitant]
     Dosage: FORM: ORAL FORMULATION (NOS)
     Route: 048
     Dates: start: 20080101

REACTIONS (2)
  - MUCORMYCOSIS [None]
  - NOCARDIOSIS [None]
